FAERS Safety Report 5101771-1 (Version None)
Quarter: 2006Q3

REPORT INFORMATION
  Report Type: 
  Country: None (occurrence: None)
  Receive Date: 20060731
  Receipt Date: 20060604
  Transmission Date: 20061208
  Serious: No
  Sender: FDA-Public Use
  Company Number: 2006PV014981

PATIENT
  Age: 66 Year
  Sex: Male
  Weight: 116.5744 kg

DRUGS (11)
  1. BYETTA [Suspect]
     Indication: DIABETES MELLITUS NON-INSULIN-DEPENDENT
     Dosage: SEE IMAGE
     Route: 058
     Dates: start: 20051001, end: 20051101
  2. BYETTA [Suspect]
     Indication: DIABETES MELLITUS NON-INSULIN-DEPENDENT
     Dosage: SEE IMAGE
     Route: 058
     Dates: start: 20051101, end: 20060602
  3. AVANDIA [Concomitant]
  4. METFORMIN HCL [Concomitant]
  5. FISH OIL [Concomitant]
  6. AMARYL [Concomitant]
  7. GLIMEPIRIDE [Concomitant]
  8. ACCUPRIL [Concomitant]
  9. QUINAPRIL [Concomitant]
  10. CRESTOR [Concomitant]
  11. TRICOR [Concomitant]

REACTIONS (3)
  - BURNING SENSATION [None]
  - DRY SKIN [None]
  - WEIGHT DECREASED [None]
